FAERS Safety Report 8289906-3 (Version None)
Quarter: 2012Q2

REPORT INFORMATION
  Report Type: 
  Country: None (occurrence: None)
  Receive Date: 20120417
  Receipt Date: 20120409
  Transmission Date: 20120825
  Serious: Yes (Hospitalization, Other)
  Sender: FDA-Public Use
  Company Number: US-ASTRAZENECA-2011SE76676

PATIENT
  Age: 56 Year
  Sex: Male

DRUGS (2)
  1. SEROQUEL XR [Suspect]
     Route: 048
  2. CRESTOR [Concomitant]
     Route: 048

REACTIONS (6)
  - NEOPLASM [None]
  - FOOT FRACTURE [None]
  - PULMONARY EMBOLISM [None]
  - PANCREATIC DISORDER [None]
  - LIVER DISORDER [None]
  - HYPOCOAGULABLE STATE [None]
